FAERS Safety Report 6028948-5 (Version None)
Quarter: 2008Q4

REPORT INFORMATION
  Report Type: 
  Country: None (occurrence: None)
  Receive Date: 20081230
  Receipt Date: 20081215
  Transmission Date: 20090506
  Serious: Yes (Death, Hospitalization)
  Sender: FDA-Public Use
  Company Number: T07-GER-05675-01

PATIENT
  Age: 84 Year
  Sex: Female

DRUGS (8)
  1. MEMANTINE HCL [Suspect]
     Indication: DEMENTIA WITH LEWY BODIES
     Dosage: 2 DOSAGE FORMS (2 DOSAGE FORMS, 1 IN 1 D), ORAL
     Route: 048
     Dates: start: 20070816, end: 20071012
  2. ENALAPRIL MALEATE [Concomitant]
  3. METOPROLOL SUCCINATE [Concomitant]
  4. DIHYDRALAZINE SULFATE (DIHYDRALAZINE SULFATE) (DIHYDRALAZINE SULFATE) [Concomitant]
  5. XIPAMIDE (XIPAMIDE) (XIPAMIDE) [Concomitant]
  6. SIMVASTATIN [Concomitant]
  7. ACETYLSALICYLIC ACID SRT [Concomitant]
  8. LEVODOPA (LEVODOPA) (LEVODOPA) [Concomitant]

REACTIONS (13)
  - CARDIAC ARREST [None]
  - CEREBRAL HAEMORRHAGE [None]
  - CIRCULATORY COLLAPSE [None]
  - FALL [None]
  - HEAD INJURY [None]
  - LOSS OF CONSCIOUSNESS [None]
  - MALIGNANT HYPERTENSION [None]
  - MUSCLE SPASMS [None]
  - RENAL DISORDER [None]
  - RENAL FAILURE [None]
  - SYNCOPE [None]
  - VENTRICLE RUPTURE [None]
  - VERTIGO [None]
